FAERS Safety Report 19082287 (Version 1)
Quarter: 2021Q1

REPORT INFORMATION
  Report Type: Spontaneous
  Country: US (occurrence: US)
  Receive Date: 20210331
  Receipt Date: 20210331
  Transmission Date: 20210420
  Serious: Yes (Life-Threatening, Hospitalization)
  Sender: FDA-Public Use
  Company Number: None

PATIENT
  Age: 24 Year
  Sex: Female
  Weight: 104.33 kg

DRUGS (1)
  1. NEXPLANON [Suspect]
     Active Substance: ETONOGESTREL

REACTIONS (6)
  - Syncope [None]
  - Therapy cessation [None]
  - Skin infection [None]
  - Fluid retention [None]
  - Concussion [None]
  - Weight increased [None]

NARRATIVE: CASE EVENT DATE: 20210322
